FAERS Safety Report 24195511 (Version 1)
Quarter: 2024Q3

REPORT INFORMATION
  Report Type: Spontaneous
  Country: US (occurrence: US)
  Receive Date: 20240809
  Receipt Date: 20240809
  Transmission Date: 20241017
  Serious: Yes (Hospitalization, Other)
  Sender: ACCORD
  Company Number: US-Accord-440446

PATIENT
  Sex: Female

DRUGS (5)
  1. CLONAZEPAM [Suspect]
     Active Substance: CLONAZEPAM
  2. FLUOXETINE [Suspect]
     Active Substance: FLUOXETINE HYDROCHLORIDE
  3. QUETIAPINE FUMARATE [Suspect]
     Active Substance: QUETIAPINE FUMARATE
  4. INSULIN NOS [Suspect]
     Active Substance: INSULIN NOS
  5. ZONISAMIDE [Suspect]
     Active Substance: ZONISAMIDE

REACTIONS (5)
  - Tremor [Recovered/Resolved]
  - Foetal exposure during pregnancy [Unknown]
  - Infantile apnoea [Recovered/Resolved]
  - Hypotonia neonatal [Recovered/Resolved]
  - Electroencephalogram abnormal [Recovered/Resolved]
